FAERS Safety Report 24054873 (Version 2)
Quarter: 2024Q3

REPORT INFORMATION
  Report Type: Spontaneous
  Country: IT (occurrence: IT)
  Receive Date: 20240705
  Receipt Date: 20240719
  Transmission Date: 20241017
  Serious: Yes (Hospitalization)
  Sender: BAYER
  Company Number: IT-BAYER-2024A092682

PATIENT
  Age: 39 Year
  Sex: Female
  Weight: 56 kg

DRUGS (1)
  1. MIRENA [Suspect]
     Active Substance: LEVONORGESTREL
     Dosage: 20?G/DAY
     Route: 015
     Dates: start: 20221228, end: 20240708

REACTIONS (3)
  - Device dislocation [None]
  - Fallopian tube disorder [None]
  - Vaginal haemorrhage [None]

NARRATIVE: CASE EVENT DATE: 20221201
